FAERS Safety Report 6282861-7 (Version None)
Quarter: 2009Q3

REPORT INFORMATION
  Report Type: 
  Country: None (occurrence: None)
  Receive Date: 20090722
  Receipt Date: 20090715
  Transmission Date: 20100115
  Serious: Yes (Hospitalization)
  Sender: FDA-Public Use
  Company Number: 2009US001999

PATIENT
  Age: 48 Year
  Sex: Male

DRUGS (6)
  1. ALEFACEPT(ALEFACEPT) INJECTION [Suspect]
     Indication: RENAL TRANSPLANT
     Dosage: 7.5 MG, UID/QD, IV NOS; 7.5 MG, UID, QD, IV NOS
     Route: 042
     Dates: start: 20090318, end: 20090318
  2. ALEFACEPT(ALEFACEPT) INJECTION [Suspect]
     Indication: RENAL TRANSPLANT
     Dosage: 7.5 MG, UID/QD, IV NOS; 7.5 MG, UID, QD, IV NOS
     Route: 042
     Dates: start: 20090321, end: 20090321
  3. ALEFACEPT(ALEFACEPT) INJECTION [Suspect]
     Indication: RENAL TRANSPLANT
     Dosage: 7.5 MG, UID/QD, IV NOS; 7.5 MG, UID, QD, IV NOS
     Route: 042
     Dates: start: 20090324, end: 20090505
  4. ALEFACEPT(ALEFACEPT) INJECTION [Suspect]
     Dosage: 30 MG, OTHER, SUBCUTANEOUS
     Route: 058
     Dates: start: 20090324, end: 20090505
  5. PROGRAF [Suspect]
     Indication: RENAL TRANSPLANT
     Dosage: 1.5 MG, BID, ORAL
     Route: 048
     Dates: start: 20090319
  6. CELLCEPT [Concomitant]

REACTIONS (7)
  - CD4 LYMPHOCYTES DECREASED [None]
  - CELLULITIS [None]
  - LYMPHOCELE [None]
  - PYREXIA [None]
  - STAPHYLOCOCCAL INFECTION [None]
  - UPPER RESPIRATORY TRACT INFECTION [None]
  - URINOMA [None]
